FAERS Safety Report 8872535 (Version 2)
Quarter: 2013Q1

REPORT INFORMATION
  Report Type: Spontaneous
  Country: US (occurrence: None)
  Receive Date: 20121024
  Receipt Date: 20121119
  Transmission Date: 20140127
  Serious: Yes (Other)
  Sender: FDA-Public Use
  Company Number: 2012MA012597

PATIENT
  Age: 85 Year
  Sex: Female

DRUGS (4)
  1. ZOLPIDEM TARTRATE [Suspect]
     Indication: PRODUCT USED FOR UNKNOWN INDICATION
     Route: 048
     Dates: start: 20120711, end: 20120712
  2. ANTIGREG [Concomitant]
  3. GLIBOMET [Concomitant]
  4. ACCURETIC [Concomitant]

REACTIONS (5)
  - Confusional state [None]
  - Dyspnoea [None]
  - Sopor [None]
  - Chest X-ray abnormal [None]
  - Blood pressure increased [None]
